FAERS Safety Report 11227093 (Version 1)
Quarter: 2015Q2

REPORT INFORMATION
  Report Type: Spontaneous
  Country: DE (occurrence: DE)
  Receive Date: 20150630
  Receipt Date: 20150630
  Transmission Date: 20150821
  Serious: Yes (Disabling, Other)
  Sender: FDA-Public Use
  Company Number: DE-DEXPHARM-20150535

PATIENT
  Age: 61 Year
  Sex: Female
  Weight: 62 kg

DRUGS (1)
  1. OMEPRAZOLE. [Suspect]
     Active Substance: OMEPRAZOLE
     Indication: GASTRITIS
     Route: 048
     Dates: start: 20150126

REACTIONS (9)
  - Headache [Recovered/Resolved]
  - Tinnitus [Recovered/Resolved]
  - Myalgia [Recovered/Resolved]
  - Aphthous stomatitis [Recovered/Resolved]
  - Mental disorder [Recovered/Resolved]
  - Salivary gland cyst [Recovered/Resolved]
  - Muscular weakness [Recovered/Resolved]
  - Vision blurred [Recovered/Resolved]
  - Dizziness [Recovered/Resolved]
